FAERS Safety Report 16723283 (Version 3)
Quarter: 2019Q4

REPORT INFORMATION
  Report Type: Report from Study
  Country: None (occurrence: US)
  Receive Date: 20190821
  Receipt Date: 20191127
  Transmission Date: 20200122
  Serious: Yes (Hospitalization, Other)
  Sender: FDA-Public Use
  Company Number: US-ABBVIE-18K-163-2518320-00

PATIENT
  Age: 64 Year
  Sex: Female
  Weight: 42.22 kg

DRUGS (1)
  1. HUMIRA [Suspect]
     Active Substance: ADALIMUMAB
     Indication: CROHN^S DISEASE
     Route: 058
     Dates: start: 2013

REACTIONS (15)
  - Fall [Unknown]
  - Pain in extremity [Recovered/Resolved]
  - Femur fracture [Recovering/Resolving]
  - Gait inability [Not Recovered/Not Resolved]
  - Osteoporosis [Unknown]
  - Dysarthria [Recovered/Resolved]
  - Rash [Recovered/Resolved]
  - Pain [Unknown]
  - Pneumothorax [Not Recovered/Not Resolved]
  - Pseudomonas infection [Recovered/Resolved]
  - Muscular weakness [Unknown]
  - Diarrhoea [Recovering/Resolving]
  - Hip fracture [Recovered/Resolved]
  - Pneumonia [Recovering/Resolving]
  - Bone pain [Recovering/Resolving]

NARRATIVE: CASE EVENT DATE: 201708
